FAERS Safety Report 5114775-X (Version None)
Quarter: 2006Q3

REPORT INFORMATION
  Report Type: 
  Country: None (occurrence: None)
  Receive Date: 20060922
  Receipt Date: 20060907
  Transmission Date: 20061208
  Serious: Yes (Hospitalization)
  Sender: FDA-Public Use
  Company Number: 2006SP001194

PATIENT
  Age: 38 Year
  Sex: Male
  Weight: 81.6 kg

DRUGS (3)
  1. TEMODAR [Suspect]
     Indication: GLIOBLASTOMA MULTIFORME
     Dosage: 200 MG/M2;QD;PO
     Route: 048
     Dates: start: 20060902
  2. IMATINIB MESYLATE [Suspect]
     Indication: GLIOBLASTOMA MULTIFORME
     Dosage: 600 MG;BID; PO
     Route: 048
     Dates: start: 20060830
  3. CONCERTA [Concomitant]

REACTIONS (6)
  - DEHYDRATION [None]
  - HYPOALBUMINAEMIA [None]
  - HYPOCALCAEMIA [None]
  - HYPOKALAEMIA [None]
  - HYPOPHOSPHATAEMIA [None]
  - VOMITING [None]
